FAERS Safety Report 21140458 (Version 3)
Quarter: 2022Q3

REPORT INFORMATION
  Report Type: Spontaneous
  Country: US (occurrence: US)
  Receive Date: 20220728
  Receipt Date: 20220916
  Transmission Date: 20221026
  Serious: No
  Sender: FDA-Public Use
  Company Number: US-UNITED THERAPEUTICS-UNT-2022-016644

PATIENT
  Age: 63 Year
  Sex: Male

DRUGS (6)
  1. REMODULIN [Suspect]
     Active Substance: TREPROSTINIL
     Indication: Pulmonary arterial hypertension
     Dosage: UNK, CONTINUING
     Route: 058
     Dates: start: 20211022
  2. REMODULIN [Suspect]
     Active Substance: TREPROSTINIL
     Dosage: 0.07325 ?G/KG, CONTINUING (PUMP RATE OF 0.032 ML/HR)
     Route: 058
  3. REMODULIN [Suspect]
     Active Substance: TREPROSTINIL
     Dosage: 0.06525 ?G/KG, CONTINUING (PUMP RATE OF 0.028 ML/HR)
     Route: 058
  4. REMODULIN [Suspect]
     Active Substance: TREPROSTINIL
     Dosage: 0.06225 ?G/KG, CONTINUING (PUMP RATE OF 0.026 ML/HR)
     Route: 058
  5. REMODULIN [Suspect]
     Active Substance: TREPROSTINIL
     Indication: Pulmonary arterial hypertension
     Dosage: UNK, CONTINUING
     Route: 058
     Dates: start: 202006
  6. REMODULIN [Suspect]
     Active Substance: TREPROSTINIL
     Dosage: 0.06195 ?G/KG, CONTINUING (PUMP RATE OF 0.054 ML/HR)
     Route: 058

REACTIONS (3)
  - Drug intolerance [Not Recovered/Not Resolved]
  - Blood pressure abnormal [Not Recovered/Not Resolved]
  - Hypotension [Unknown]

NARRATIVE: CASE EVENT DATE: 20220801
